FAERS Safety Report 6548981-4 (Version None)
Quarter: 2010Q1

REPORT INFORMATION
  Report Type: 
  Country: None (occurrence: None)
  Receive Date: 20100119
  Receipt Date: 20091215
  Transmission Date: 20100710
  Serious: Yes (Hospitalization)
  Sender: FDA-Public Use
  Company Number: 2010010042

PATIENT
  Age: 35 Year
  Sex: Female

DRUGS (9)
  1. VOLUVEN [Suspect]
     Indication: SURGERY
     Dosage: INTRAVENOUS
     Route: 042
     Dates: start: 20091112, end: 20091112
  2. FENTANYL [Concomitant]
  3. BUPIVACAINE (BUPIVACAINE) (BUPIVACAINE) [Concomitant]
  4. METRONIDAZOLE [Concomitant]
  5. GENTAMICIN [Concomitant]
  6. CEFOTAXIME (CEFOTAXIME) (CEFOTAXIME) [Concomitant]
  7. AMICAKIN (AMIKACIN SULFATE) (AMIKACIN SULFATE) [Concomitant]
  8. METAMIZOLE (METAMIZOLE) (METAMIZOLE) [Concomitant]
  9. RANITIDINE (RANITIDINE) (RANITIDINE) [Concomitant]

REACTIONS (2)
  - ANAPHYLACTIC REACTION [None]
  - ARRHYTHMIA [None]
